FAERS Safety Report 6109547-3 (Version None)
Quarter: 2009Q1

REPORT INFORMATION
  Report Type: 
  Country: None (occurrence: None)
  Receive Date: 20090310
  Receipt Date: 20090306
  Transmission Date: 20090719
  Serious: Yes (Hospitalization)
  Sender: FDA-Public Use
  Company Number: US-ASTRAZENECA-2009UW05980

PATIENT
  Age: 64 Year
  Sex: Female
  Weight: 67.6 kg

DRUGS (6)
  1. SYMBICORT [Suspect]
     Indication: ASTHMA
     Dosage: 640 MCG TOTAL DAILY DOSE
     Route: 055
     Dates: start: 20080801
  2. ALBUTEROL [Concomitant]
     Indication: CHRONIC OBSTRUCTIVE PULMONARY DISEASE
  3. IPRATROPIUM BROMIDE [Concomitant]
     Indication: CHRONIC OBSTRUCTIVE PULMONARY DISEASE
  4. PLAVIX [Concomitant]
     Indication: CAROTID ARTERY OCCLUSION
  5. LISINOPRIL [Concomitant]
     Indication: BLOOD PRESSURE
  6. SINGULAIR [Concomitant]

REACTIONS (4)
  - FEELING JITTERY [None]
  - FLUID RETENTION [None]
  - HEADACHE [None]
  - NAUSEA [None]
